FAERS Safety Report 4313419-4 (Version None)
Quarter: 2004Q1

REPORT INFORMATION
  Report Type: 
  Country: None (occurrence: None)
  Receive Date: 20040304
  Receipt Date: 20040213
  Transmission Date: 20041129
  Serious: Yes (Other)
  Sender: FDA-Public Use
  Company Number: US_0402100838

PATIENT
  Age: 55 Year
  Sex: Female

DRUGS (2)
  1. ZYPREXA [Suspect]
     Indication: BIPOLAR DISORDER
     Dosage: 2.5 MG
  2. KLONOPIN [Concomitant]

REACTIONS (3)
  - SWELLING FACE [None]
  - TONGUE DISORDER [None]
  - TRACHEAL OBSTRUCTION [None]
